FAERS Safety Report 5090161-6 (Version None)
Quarter: 2006Q3

REPORT INFORMATION
  Report Type: 
  Country: None (occurrence: None)
  Receive Date: 20060828
  Receipt Date: 20060704
  Transmission Date: 20061208
  Serious: Yes (Other)
  Sender: FDA-Public Use
  Company Number: US-ROCHE-454210

PATIENT
  Age: 57 Year
  Sex: Female

DRUGS (6)
  1. PEGASYS [Suspect]
     Dosage: ROUTE REPORTED AS: INJ.
     Route: 065
     Dates: start: 20050816
  2. COPEGUS [Suspect]
     Route: 048
     Dates: start: 20050816
  3. PREMARIN [Concomitant]
  4. KLONOPIN [Concomitant]
  5. PREMARIN [Concomitant]
  6. HYDROCODONE BITARTRATE [Concomitant]

REACTIONS (13)
  - AMNESIA [None]
  - BEDRIDDEN [None]
  - HALLUCINATION, OLFACTORY [None]
  - HALLUCINATION, VISUAL [None]
  - HYPOACUSIS [None]
  - IMPAIRED DRIVING ABILITY [None]
  - MIGRAINE [None]
  - OBSESSIVE-COMPULSIVE DISORDER [None]
  - PARANOIA [None]
  - SERUM SEROTONIN DECREASED [None]
  - TOOTH LOSS [None]
  - VISION BLURRED [None]
  - WEIGHT INCREASED [None]
